FAERS Safety Report 9496304 (Version 2)
Quarter: 2014Q1

REPORT INFORMATION
  Report Type: Report from Study
  Country: US (occurrence: US)
  Receive Date: 20130904
  Receipt Date: 20140130
  Transmission Date: 20141002
  Serious: Yes (Hospitalization, Other)
  Sender: FDA-Public Use
  Company Number: US-ASTELLAS-2013US008997

PATIENT
  Age: 19 Year
  Sex: Male
  Weight: 64 kg

DRUGS (21)
  1. ERLOTINIB TABLET [Suspect]
     Indication: ACUTE MYELOID LEUKAEMIA
     Dosage: UNK
     Route: 065
     Dates: start: 20130808
  2. ERLOTINIB TABLET [Suspect]
     Dosage: 150 MG, UID/QD
     Route: 048
     Dates: start: 20130812
  3. CYTARABINE [Concomitant]
     Indication: LEUKAEMIA
     Dosage: 100 MG, TOTAL DOSE
     Route: 037
     Dates: start: 20130723, end: 20130723
  4. CYTARABINE [Concomitant]
     Dosage: 100 MG, TOTAL DOSE
     Route: 037
     Dates: start: 20130730, end: 20130730
  5. METHOTREXATE [Concomitant]
     Indication: PRODUCT USED FOR UNKNOWN INDICATION
     Dosage: 12 MG, TOTAL DOSE
     Route: 037
     Dates: start: 20130719, end: 20130719
  6. METHOTREXATE [Concomitant]
     Dosage: 12 MG, TOTAL DOSE
     Route: 037
     Dates: start: 20130726, end: 20130726
  7. ABH [Concomitant]
     Indication: NAUSEA
     Dosage: 1 DF, Q6H, PRN
     Route: 048
  8. ABH [Concomitant]
     Indication: VOMITING
     Dosage: 1 DF, Q6 HOURS, PRN
     Route: 048
  9. ALBUTEROL                          /00139501/ [Concomitant]
     Indication: DYSPNOEA
     Dosage: 90 UG, Q4H, PRN
     Route: 055
  10. ZOFRAN                             /00955301/ [Concomitant]
     Indication: NAUSEA
     Dosage: 8 MG, Q8H, PRN
     Route: 048
  11. ZOFRAN                             /00955301/ [Concomitant]
     Indication: VOMITING
  12. TRAMADOL [Concomitant]
     Indication: PAIN
     Dosage: 50 MG, Q6H, PRN
     Route: 048
  13. ADVAIR [Concomitant]
     Indication: PRODUCT USED FOR UNKNOWN INDICATION
     Dosage: 1 DF, BID
     Route: 055
  14. HEPARIN [Concomitant]
     Indication: CATHETER MANAGEMENT
     Dosage: 100 U/ML UID/QD
     Route: 042
  15. HYDREA [Concomitant]
     Indication: ACUTE MYELOID LEUKAEMIA
     Dosage: 2000 MG, UID/QD
     Route: 048
  16. LEVAQUIN [Concomitant]
     Indication: PRODUCT USED FOR UNKNOWN INDICATION
     Dosage: 500 MG, UID/QD
     Route: 048
  17. MONTELUKAST [Concomitant]
     Indication: PRODUCT USED FOR UNKNOWN INDICATION
     Dosage: 10 MG, UID/QD
     Route: 048
  18. POTASSIUM CHLORIDE [Concomitant]
     Indication: PRODUCT USED FOR UNKNOWN INDICATION
     Dosage: 20 MEQ, BID
     Route: 048
  19. PROTONIX [Concomitant]
     Dosage: 1 DF, UID/QD
     Route: 048
  20. VALTREX [Concomitant]
     Indication: PRODUCT USED FOR UNKNOWN INDICATION
     Dosage: 500 MG, UID/QD
     Route: 048
  21. VFEND [Concomitant]
     Indication: PRODUCT USED FOR UNKNOWN INDICATION
     Dosage: 200 MG, BID
     Route: 048

REACTIONS (6)
  - Off label use [Unknown]
  - Anaemia [Unknown]
  - Thrombocytopenia [Unknown]
  - Febrile neutropenia [Unknown]
  - Gingival hyperplasia [Unknown]
  - Lung infection [Unknown]
